FAERS Safety Report 20552970 (Version 1)
Quarter: 2022Q1

REPORT INFORMATION
  Report Type: Spontaneous
  Country: US (occurrence: US)
  Receive Date: 20220304
  Receipt Date: 20220304
  Transmission Date: 20220423
  Serious: No
  Sender: FDA-Public Use
  Company Number: US-SA-SAC20220228000305

PATIENT
  Sex: Female

DRUGS (1)
  1. DUPIXENT [Suspect]
     Active Substance: DUPILUMAB
     Indication: Dermatitis contact
     Dosage: 300 MG, Q4W
     Route: 058
     Dates: start: 2020

REACTIONS (3)
  - Incorrect route of product administration [Unknown]
  - Product use issue [Unknown]
  - Product use in unapproved indication [Unknown]
